FAERS Safety Report 16064009 (Version 3)
Quarter: 2019Q2

REPORT INFORMATION
  Report Type: Spontaneous
  Country: PT (occurrence: PT)
  Receive Date: 20190312
  Receipt Date: 20190628
  Transmission Date: 20190711
  Serious: Yes (Hospitalization, Other)
  Sender: FDA-Public Use
  Company Number: PHHY2019PT054781

PATIENT
  Age: 68 Year
  Sex: Male

DRUGS (3)
  1. CLINDAMYCIN. [Suspect]
     Active Substance: CLINDAMYCIN
     Indication: PRODUCT USED FOR UNKNOWN INDICATION
     Dosage: UNK
     Route: 065
  2. AMOXICILLIN SODIUM+POTASSIUM CLAVULANATE [Suspect]
     Active Substance: AMOXICILLIN\CLAVULANATE POTASSIUM
     Indication: PRODUCT USED FOR UNKNOWN INDICATION
     Dosage: UNK
     Route: 065
  3. IBUPROFEN. [Suspect]
     Active Substance: IBUPROFEN
     Indication: DRESSLER^S SYNDROME
     Dosage: 600 MG, BID
     Route: 005

REACTIONS (8)
  - Hypersensitivity [Unknown]
  - Proteinuria [Unknown]
  - Product use in unapproved indication [Unknown]
  - Acute kidney injury [Recovering/Resolving]
  - Haematuria [Unknown]
  - Drug ineffective [Recovered/Resolved]
  - Blood creatinine increased [Recovered/Resolved]
  - Tuberculous pleurisy [Recovered/Resolved]
